FAERS Safety Report 4830122-2 (Version None)
Quarter: 2005Q4

REPORT INFORMATION
  Report Type: 
  Country: None (occurrence: None)
  Receive Date: 20051117
  Receipt Date: 20051114
  Transmission Date: 20060501
  Serious: Yes (Life-Threatening)
  Sender: FDA-Public Use
  Company Number: 2005CG01891

PATIENT
  Age: 54 Year
  Sex: Male

DRUGS (8)
  1. MOPRAL [Suspect]
     Route: 048
  2. HEPT-A-MYL [Suspect]
     Route: 048
  3. TERCIAN [Suspect]
     Route: 048
  4. ELISOR [Suspect]
     Route: 048
  5. SUFENTANIL CITRATE [Concomitant]
     Dates: start: 20050929, end: 20050929
  6. HYPNOMIDATE [Concomitant]
     Indication: INDUCTION OF ANAESTHESIA
     Dates: start: 20050929, end: 20050929
  7. NIMBEX [Concomitant]
     Indication: INDUCTION OF ANAESTHESIA
     Dates: start: 20050929, end: 20050929
  8. HALOGENATED AGENT [Concomitant]
     Indication: INDUCTION OF ANAESTHESIA
     Dates: start: 20050929, end: 20050929

REACTIONS (3)
  - COAGULOPATHY [None]
  - FIBRINOLYSIS INCREASED [None]
  - HAEMORRHAGE [None]
